FAERS Safety Report 18611349 (Version 5)
Quarter: 2021Q4

REPORT INFORMATION
  Report Type: Spontaneous
  Country: IN (occurrence: IN)
  Receive Date: 20201214
  Receipt Date: 20211130
  Transmission Date: 20220303
  Serious: Yes (Other)
  Sender: FDA-Public Use
  Company Number: IN-PFIZER INC-2020492779

PATIENT
  Age: 73 Year
  Sex: Female

DRUGS (11)
  1. PALBOCICLIB [Suspect]
     Active Substance: PALBOCICLIB
     Indication: Breast cancer metastatic
     Dosage: 100MG CYCLIC (ONCE DAILY 21 DAYS THEN 7 DAYS OFF) TAKE WITH FOOD
     Route: 048
     Dates: start: 20201121
  2. ZOLEDRONIC ACID [Concomitant]
     Active Substance: ZOLEDRONIC ACID
     Dosage: 4 MG IN 100ML NS OVER 30MINUTES
     Route: 042
  3. FEMARA [Concomitant]
     Active Substance: LETROZOLE
     Dosage: 2.5 MG, 1X/DAY
     Route: 048
  4. CC74 [Concomitant]
     Dosage: UNK UNK, 1X/DAY (CHEWABLE)
     Route: 048
  5. CC74 [Concomitant]
     Dosage: UNK UNK, 2X/DAY
     Route: 048
  6. RABICIP [Concomitant]
     Indication: Hyperchlorhydria
     Dosage: 20 MG, 1X/DAY
     Route: 048
  7. RABICIP [Concomitant]
     Indication: Flatulence
  8. ZOLPIDEM TARTRATE [Concomitant]
     Active Substance: ZOLPIDEM TARTRATE
     Indication: Sleep disorder
     Dosage: 5 MG, 1X/DAY (BEFORE BED TIME)
  9. URSOCOL SR [Concomitant]
     Indication: Liver disorder
     Dosage: 450 MG, 2X/DAY
  10. EVION [ASCORBIC ACID;LYCOPENE;OMEGA-3 FATTY ACIDS;TOCOPHEROL] [Concomitant]
     Indication: Liver disorder
     Dosage: 400 MG, 2X/DAY
  11. DENOSUREL [Concomitant]
     Dosage: 120 MG, 1X/DAY
     Route: 058

REACTIONS (3)
  - Hyperthyroidism [Unknown]
  - Cough [Unknown]
  - Dizziness [Unknown]
